FAERS Safety Report 13513980 (Version 7)
Quarter: 2021Q2

REPORT INFORMATION
  Report Type: Spontaneous
  Country: BR (occurrence: BR)
  Receive Date: 20170504
  Receipt Date: 20210419
  Transmission Date: 20210716
  Serious: Yes (Hospitalization, Other)
  Sender: FDA-Public Use
  Company Number: BR-BIOMARINAP-BR-2017-113702

PATIENT
  Age: 14 Year
  Sex: Female
  Weight: 28 kg

DRUGS (2)
  1. NAGLAZYME [Suspect]
     Active Substance: GALSULFASE
     Indication: MUCOPOLYSACCHARIDOSIS VI
     Dosage: 25 MG, QW
     Route: 042
     Dates: start: 200810
  2. TRILEPTAL [Concomitant]
     Active Substance: OXCARBAZEPINE
     Indication: SEIZURE
     Dosage: 2 ML, TID

REACTIONS (8)
  - Mass [Unknown]
  - Spinal stenosis [Unknown]
  - Scoliosis [Unknown]
  - Joint range of motion decreased [Unknown]
  - Spinal pain [Unknown]
  - Product dose omission issue [Unknown]
  - Fatigue [Not Recovered/Not Resolved]
  - Gait disturbance [Recovering/Resolving]
